FAERS Safety Report 6918243-1 (Version None)
Quarter: 2010Q3

REPORT INFORMATION
  Report Type: 
  Country: None (occurrence: None)
  Receive Date: 20100811
  Receipt Date: 20100727
  Transmission Date: 20110219
  Serious: Yes (Other)
  Sender: FDA-Public Use
  Company Number: GB-RANBAXY-2010RR-36853

PATIENT
  Age: 45 Year
  Sex: Female

DRUGS (15)
  1. DIAZEPAM [Suspect]
     Indication: ANXIETY
     Dosage: 10 MG, QD
     Route: 048
  2. CAFFEINE [Suspect]
     Indication: INSOMNIA
     Route: 065
  3. DIHYDROCODEINE BITARTRATE INJ [Suspect]
     Indication: PAIN
     Dosage: UNK
     Route: 048
     Dates: end: 20100618
  4. HALOPERIDOL [Suspect]
     Indication: PSYCHOTIC DISORDER
     Dosage: 10 MG, QD
     Route: 048
  5. VALPROATE SODIUM [Suspect]
     Indication: AFFECTIVE DISORDER
     Dosage: 800 MG, UNK
     Route: 048
  6. ZOLPIDEM [Suspect]
     Indication: INSOMNIA
     Dosage: 10 MG, QD
     Route: 048
     Dates: end: 20100618
  7. AMLODIPINE [Concomitant]
     Indication: PRODUCT USED FOR UNKNOWN INDICATION
     Dosage: 40 MG, UNK
     Route: 065
  8. ASPIRIN [Concomitant]
     Indication: PRODUCT USED FOR UNKNOWN INDICATION
     Dosage: 10 MG, QD
     Route: 065
  9. CAFFEINE [Concomitant]
     Indication: PRODUCT USED FOR UNKNOWN INDICATION
     Dosage: 16 MG, QD
     Route: 065
  10. CANDESARTAN CILEXETIL [Concomitant]
     Indication: PRODUCT USED FOR UNKNOWN INDICATION
     Dosage: 75 MG, QD
     Route: 065
  11. DIHYDROCODEINE BITARTRATE INJ [Concomitant]
     Indication: PRODUCT USED FOR UNKNOWN INDICATION
     Dosage: 30 MG, BID
     Route: 065
  12. LANSOPRAZOLE [Concomitant]
     Indication: PRODUCT USED FOR UNKNOWN INDICATION
     Dosage: 5 MG, QD
     Route: 065
  13. PROCYCLIDINE HYDROCHLORIDE 2MG TAB [Concomitant]
     Indication: DIABETES MELLITUS
     Route: 065
  14. SIMVASTATIN [Concomitant]
     Indication: PRODUCT USED FOR UNKNOWN INDICATION
     Dosage: 10 MG, QD
     Route: 065
  15. ZOLPIDEM [Concomitant]
     Indication: PRODUCT USED FOR UNKNOWN INDICATION
     Dosage: 40 MG, QD
     Route: 065

REACTIONS (5)
  - CONFUSIONAL STATE [None]
  - DRUG ABUSE [None]
  - DRUG INTERACTION [None]
  - HALLUCINATION [None]
  - SEDATION [None]
